FAERS Safety Report 16074857 (Version 1)
Quarter: 2019Q1

REPORT INFORMATION
  Report Type: Spontaneous
  Country: CH (occurrence: CH)
  Receive Date: 20190314
  Receipt Date: 20190314
  Transmission Date: 20190418
  Serious: Yes (Other)
  Sender: FDA-Public Use
  Company Number: CH-MYLANLABS-2019M1018502

PATIENT

DRUGS (13)
  1. QUETIAPIN SANDOZ [Concomitant]
     Active Substance: QUETIAPINE
     Dosage: 12.5 MILLIGRAM, QD
     Route: 048
  2. MARCOUMAR [Concomitant]
     Active Substance: PHENPROCOUMON
     Dosage: 1 DOSAGE FORM, QD
     Route: 048
     Dates: start: 20181231
  3. OBRACIN [Suspect]
     Active Substance: TOBRAMYCIN
     Dosage: 150 MILLIGRAM, TOTAL
     Route: 042
     Dates: start: 20190106, end: 20190106
  4. VORICONAZOL PFIZER [Suspect]
     Active Substance: VORICONAZOLE
     Indication: BRONCHOPULMONARY ASPERGILLOSIS
     Dosage: 250 MILLIGRAM, BID
     Route: 048
     Dates: start: 201612
  5. CALCIUM ACETATE. [Concomitant]
     Active Substance: CALCIUM ACETATE
     Dosage: 1000 MILLIGRAM, Q8H
     Route: 048
     Dates: start: 20181231
  6. METOPROLOL MEPHA ZOK [Concomitant]
     Active Substance: METOPROLOL SUCCINATE
     Dosage: 50 MILLIGRAM, BID
     Route: 048
     Dates: start: 20181231
  7. OBRACIN [Suspect]
     Active Substance: TOBRAMYCIN
     Indication: PSEUDOMONAL BACTERAEMIA
     Dosage: 150 MILLIGRAM, TOTAL
     Route: 042
     Dates: start: 20190104, end: 20190104
  8. CITALOPRAM MEPHA [Concomitant]
     Active Substance: CITALOPRAM HYDROBROMIDE
     Dosage: 20 MILLIGRAM, QD
     Route: 048
     Dates: start: 20181231
  9. RENAGEL [Concomitant]
     Active Substance: SEVELAMER HYDROCHLORIDE
     Dosage: 800 MILLIGRAM, Q8H
     Route: 048
     Dates: start: 20181231
  10. OBRACIN [Suspect]
     Active Substance: TOBRAMYCIN
     Dosage: 150 MILLIGRAM, TOTAL
     Route: 042
     Dates: start: 20190109, end: 20190109
  11. DIALVIT [Concomitant]
     Dosage: 1 DOSAGE FORM, QD
     Route: 048
     Dates: start: 20181231
  12. RANITIDIN-MEPHA [Concomitant]
     Dosage: 150 MILLIGRAM, QD
     Route: 048
     Dates: start: 20181231
  13. TOREM [Suspect]
     Active Substance: TORSEMIDE
     Indication: PRODUCT USED FOR UNKNOWN INDICATION
     Dosage: 200 MILLIGRAM, QD (1-0-0-0)
     Route: 048

REACTIONS (2)
  - Deafness [Not Recovered/Not Resolved]
  - Ototoxicity [Not Recovered/Not Resolved]

NARRATIVE: CASE EVENT DATE: 20190110
